FAERS Safety Report 11994834 (Version 3)
Quarter: 2016Q4

REPORT INFORMATION
  Report Type: Spontaneous
  Country: US (occurrence: US)
  Receive Date: 20160203
  Receipt Date: 20161028
  Transmission Date: 20170206
  Serious: Yes (Death, Life-Threatening, Hospitalization, Other)
  Sender: FDA-Public Use
  Company Number: US-009507513-1602USA001347

PATIENT
  Sex: Male
  Weight: 56.69 kg

DRUGS (1)
  1. JANUVIA [Suspect]
     Active Substance: SITAGLIPTIN PHOSPHATE
     Indication: TYPE 2 DIABETES MELLITUS
     Dosage: 100 MG, QD
     Route: 048
     Dates: start: 20110810, end: 20130922

REACTIONS (38)
  - Pancreatic carcinoma metastatic [Fatal]
  - Pneumonia [Unknown]
  - Mitral valve incompetence [Unknown]
  - Anaemia [Unknown]
  - Pancreatitis [Unknown]
  - Haematoma [Unknown]
  - Intra-abdominal fluid collection [Unknown]
  - Diastolic dysfunction [Unknown]
  - Pleural effusion [Unknown]
  - Malnutrition [Unknown]
  - Seroma [Unknown]
  - Back pain [Not Recovered/Not Resolved]
  - Metastases to lymph nodes [Unknown]
  - Insulin-requiring type 2 diabetes mellitus [Unknown]
  - Metastases to muscle [Unknown]
  - Tricuspid valve incompetence [Unknown]
  - Somnolence [Unknown]
  - Left atrial dilatation [Unknown]
  - Blood cholesterol increased [Unknown]
  - Vision blurred [Recovered/Resolved]
  - Abdominal distension [Unknown]
  - Metastases to liver [Unknown]
  - Metastases to bone [Unknown]
  - Small intestinal obstruction [Unknown]
  - Pulmonary oedema [Unknown]
  - Lymphangiosis carcinomatosa [Unknown]
  - Incontinence [Unknown]
  - Metastases to peritoneum [Unknown]
  - Metastases to adrenals [Unknown]
  - Pulmonary embolism [Unknown]
  - Hypertension [Unknown]
  - Erythema [Recovering/Resolving]
  - Tumour invasion [Unknown]
  - Haemorrhage [Unknown]
  - Confusional state [Unknown]
  - Constipation [Unknown]
  - Pathological fracture [Unknown]
  - Pulmonary arterial pressure increased [Unknown]

NARRATIVE: CASE EVENT DATE: 2011
